FAERS Safety Report 20435532 (Version 2)
Quarter: 2022Q1

REPORT INFORMATION
  Report Type: Spontaneous
  Country: US (occurrence: None)
  Receive Date: 20220206
  Receipt Date: 20220307
  Transmission Date: 20220424
  Serious: No
  Sender: FDA-Public Use
  Company Number: 2022A042408

PATIENT
  Age: 938 Month
  Sex: Female
  Weight: 72.6 kg

DRUGS (1)
  1. SYMBICORT [Suspect]
     Active Substance: BUDESONIDE\FORMOTEROL FUMARATE DIHYDRATE
     Indication: Asthma
     Dosage: 160/4.5 MCG 120 INHALATIONS,TWO PUFFS TWICE DAILY
     Route: 055

REACTIONS (9)
  - COVID-19 [Unknown]
  - Visual impairment [Unknown]
  - Feeling abnormal [Unknown]
  - Fatigue [Unknown]
  - Device use issue [Unknown]
  - Product dose omission in error [Unknown]
  - Product dose omission issue [Unknown]
  - Device malfunction [Unknown]
  - Device defective [Unknown]

NARRATIVE: CASE EVENT DATE: 20211101
